FAERS Safety Report 8915902 (Version 2)
Quarter: 2014Q1

REPORT INFORMATION
  Report Type: Spontaneous
  Country: US (occurrence: US)
  Receive Date: 20121119
  Receipt Date: 20140107
  Transmission Date: 20141002
  Serious: No
  Sender: FDA-Public Use
  Company Number: US-PFIZER INC-2012287136

PATIENT
  Age: 67 Year
  Sex: Male
  Weight: 72.56 kg

DRUGS (2)
  1. DILANTIN [Suspect]
     Indication: CONVULSION
     Dosage: UNK
     Dates: start: 1999
  2. DILANTIN [Suspect]
     Dosage: 100MG IN THE MORNING AND A 100MG AND TWO 30MG PILLS AT NIGHT
     Route: 048
     Dates: start: 2000

REACTIONS (3)
  - Nasopharyngitis [Unknown]
  - Sinus disorder [Recovering/Resolving]
  - Malaise [Recovering/Resolving]
